FAERS Safety Report 5246309-3 (Version None)
Quarter: 2007Q1

REPORT INFORMATION
  Report Type: 
  Country: None (occurrence: None)
  Receive Date: 20061201
  Receipt Date: 20060726
  Transmission Date: 20070707
  Serious: No
  Sender: FDA-Public Use
  Company Number: 2006PV018271

PATIENT
  Age: 80 Year
  Sex: Female
  Weight: 103.8737 kg

DRUGS (4)
  1. BYETTA [Suspect]
     Indication: DIABETES MELLITUS NON-INSULIN-DEPENDENT
     Dosage: SEE IMAGE
     Dates: start: 20060622, end: 20060721
  2. BYETTA [Suspect]
     Indication: DIABETES MELLITUS NON-INSULIN-DEPENDENT
     Dosage: SEE IMAGE
     Dates: start: 20060722
  3. GLYBURIDE [Concomitant]
  4. METFORMIN [Concomitant]

REACTIONS (3)
  - BLOOD GLUCOSE INCREASED [None]
  - VITREOUS FLOATERS [None]
  - WEIGHT DECREASED [None]
